FAERS Safety Report 19610275 (Version 3)
Quarter: 2021Q3

REPORT INFORMATION
  Report Type: Report from Study
  Country: FR (occurrence: FR)
  Receive Date: 20210726
  Receipt Date: 20210827
  Transmission Date: 20211014
  Serious: Yes (Other)
  Sender: FDA-Public Use
  Company Number: FR-TAKEDA-2021TUS046066

PATIENT
  Sex: Female

DRUGS (8)
  1. DOLIPRANE [Concomitant]
     Active Substance: ACETAMINOPHEN
     Dosage: UNK
  2. SPECIAFOLDINE [Concomitant]
     Active Substance: FOLIC ACID
     Dosage: UNK
  3. TRAMADOL. [Concomitant]
     Active Substance: TRAMADOL
     Dosage: UNK
  4. ELUDRIL [Concomitant]
     Dosage: UNK
  5. INEXIUM [Concomitant]
     Active Substance: ESOMEPRAZOLE
     Dosage: UNK
  6. CHOLURSO [Concomitant]
     Active Substance: URSODIOL
     Dosage: UNK
  7. ELIQUIS [Concomitant]
     Active Substance: APIXABAN
     Dosage: UNK
  8. VEDOLIZUMAB [Suspect]
     Active Substance: VEDOLIZUMAB
     Indication: INFLAMMATORY BOWEL DISEASE
     Dosage: UNK
     Route: 042
     Dates: start: 20171115

REACTIONS (4)
  - Urinary tract infection [Recovered/Resolved]
  - Abortion spontaneous [Recovered/Resolved]
  - Pregnancy [Recovered/Resolved]
  - Cholelithiasis migration [Not Recovered/Not Resolved]

NARRATIVE: CASE EVENT DATE: 20210329
